FAERS Safety Report 16804618 (Version 6)
Quarter: 2022Q4

REPORT INFORMATION
  Report Type: Report from Study
  Country: US (occurrence: None)
  Receive Date: 20190913
  Receipt Date: 20221013
  Transmission Date: 20230113
  Serious: Yes (Hospitalization, Other)
  Sender: FDA-Public Use
  Company Number: US-ROCHE-2286557

PATIENT
  Age: 44 Year
  Sex: Female
  Weight: 117.3 kg

DRUGS (6)
  1. ATEZOLIZUMAB [Suspect]
     Active Substance: ATEZOLIZUMAB
     Indication: Diffuse large B-cell lymphoma
     Dosage: LOADING DOSE?MOST RECENT DOSE ADMINISTERED ON 07/MAR/2019-1680 MG
     Route: 041
     Dates: start: 20190221
  2. ATEZOLIZUMAB [Suspect]
     Active Substance: ATEZOLIZUMAB
     Dosage: MAINTENANCE DOSE OVER 60 MINUTES ON DAY 1, LAST ADMINISTERED DATE: 07/MAR/2019
     Route: 042
  3. RITUXIMAB [Suspect]
     Active Substance: RITUXIMAB
     Indication: Diffuse large B-cell lymphoma
     Dosage: LOADING DOSE?MOST RECENT DOSE ADMINISTERED ON 07/MAR/2019-1800 MG
     Route: 041
     Dates: start: 20190207
  4. RITUXIMAB [Suspect]
     Active Substance: RITUXIMAB
     Dosage: MAINTENANCE DOSE ON DAY 1
     Route: 042
  5. GEMCITABINE HYDROCHLORIDE [Suspect]
     Active Substance: GEMCITABINE HYDROCHLORIDE
     Indication: Diffuse large B-cell lymphoma
     Dosage: MOST RECENT DOSE ADMINISTERED ON 07/MAR/2019-4600 MG
     Route: 042
     Dates: start: 20190207
  6. OXALIPLATIN [Suspect]
     Active Substance: OXALIPLATIN
     Indication: Diffuse large B-cell lymphoma
     Dosage: MOST RECENT DOSE ADMINISTERED ON 07/MAR/2019-400 MG
     Route: 042
     Dates: start: 20190207

REACTIONS (3)
  - Febrile neutropenia [Recovered/Resolved]
  - Syncope [Unknown]
  - Embolism [Unknown]

NARRATIVE: CASE EVENT DATE: 20190312
